FAERS Safety Report 25421588 (Version 2)
Quarter: 2025Q3

REPORT INFORMATION
  Report Type: Spontaneous
  Country: EU (occurrence: EU)
  Receive Date: 20250611
  Receipt Date: 20250805
  Transmission Date: 20251020
  Serious: Yes (Other)
  Sender: AUROBINDO
  Company Number: EU-BRISTOL-MYERS SQUIBB COMPANY-2025-061301

PATIENT
  Age: 68 Year
  Sex: Male
  Weight: 76 kg

DRUGS (9)
  1. CARBOPLATIN [Suspect]
     Active Substance: CARBOPLATIN
     Indication: Non-small cell lung cancer
     Route: 042
     Dates: start: 20250414
  2. CARBOPLATIN [Suspect]
     Active Substance: CARBOPLATIN
     Route: 042
     Dates: start: 20250505
  3. NIVOLUMAB [Suspect]
     Active Substance: NIVOLUMAB
     Indication: Non-small cell lung cancer
     Route: 042
     Dates: start: 20250414
  4. PACLITAXEL [Suspect]
     Active Substance: PACLITAXEL
     Indication: Non-small cell lung cancer
     Route: 042
     Dates: start: 20250414
  5. PACLITAXEL [Suspect]
     Active Substance: PACLITAXEL
     Route: 042
     Dates: start: 20250422
  6. PACLITAXEL [Suspect]
     Active Substance: PACLITAXEL
     Route: 042
     Dates: start: 20250505
  7. PACLITAXEL [Suspect]
     Active Substance: PACLITAXEL
     Route: 042
     Dates: start: 20250512
  8. PANTOPRAZOLE SODIUM [Concomitant]
     Active Substance: PANTOPRAZOLE SODIUM
     Indication: Prophylaxis
     Dosage: 40 MILLIGRAM, ONCE A DAY
     Route: 048
  9. ASPIRIN [Concomitant]
     Active Substance: ASPIRIN
     Indication: Prophylaxis
     Dosage: 100 MILLIGRAM, ONCE A DAY
     Route: 048

REACTIONS (3)
  - Hypertensive crisis [Recovered/Resolved]
  - Fatigue [Recovered/Resolved]
  - Alopecia [Recovered/Resolved]

NARRATIVE: CASE EVENT DATE: 20250415
